FAERS Safety Report 9223384 (Version 3)
Quarter: 2013Q4

REPORT INFORMATION
  Report Type: Spontaneous
  Country: GB (occurrence: GB)
  Receive Date: 20130410
  Receipt Date: 20131018
  Transmission Date: 20140711
  Serious: Yes (Other)
  Sender: FDA-Public Use
  Company Number: GB-VERTEX PHARMACEUTICALS INC.-2013-003823

PATIENT
  Age: 46 Year
  Sex: Male
  Weight: 92 kg

DRUGS (6)
  1. INCIVO [Suspect]
     Indication: HEPATITIS C
     Dosage: 750 MG, TID
     Route: 048
     Dates: start: 20130205, end: 20130312
  2. INCIVO [Suspect]
     Dosage: 750 MG, TID
     Route: 048
     Dates: start: 20130314
  3. PEGASYS [Concomitant]
     Indication: PRODUCT USED FOR UNKNOWN INDICATION
     Dosage: 180 ?G, QW
     Route: 065
     Dates: start: 20130205, end: 20130312
  4. PEGASYS [Concomitant]
     Dosage: 180 ?G, QW
     Route: 065
     Dates: start: 20130314
  5. COPEGUS [Concomitant]
     Indication: PRODUCT USED FOR UNKNOWN INDICATION
     Dosage: 600 MG, BID
     Route: 065
     Dates: start: 20130205, end: 20130312
  6. COPEGUS [Concomitant]
     Dosage: 600 MG, BID
     Route: 065
     Dates: start: 20130314

REACTIONS (4)
  - Lethargy [Recovered/Resolved]
  - Dyspnoea [Recovered/Resolved]
  - Drug dose omission [Recovered/Resolved]
  - Off label use [Unknown]
